FAERS Safety Report 11408986 (Version 1)
Quarter: 2015Q3

REPORT INFORMATION
  Report Type: Report from Study
  Country: US (occurrence: US)
  Receive Date: 20150824
  Receipt Date: 20150824
  Transmission Date: 20151125
  Serious: No
  Sender: FDA-Public Use
  Company Number: PHEH2015US011436

PATIENT
  Age: 41 Year
  Sex: Female
  Weight: 81.63 kg

DRUGS (1)
  1. GILENYA [Suspect]
     Active Substance: FINGOLIMOD HYDROCHLORIDE
     Indication: MULTIPLE SCLEROSIS
     Dosage: 0.5 MG, QD
     Route: 048
     Dates: start: 20150602

REACTIONS (5)
  - Contusion [Unknown]
  - White blood cell count decreased [Unknown]
  - Eye contusion [Unknown]
  - Eyelid disorder [Unknown]
  - Superficial injury of eye [Unknown]

NARRATIVE: CASE EVENT DATE: 20150613
